FAERS Safety Report 7365501-5 (Version None)
Quarter: 2011Q1

REPORT INFORMATION
  Report Type: 
  Country: None (occurrence: None)
  Receive Date: 20110322
  Receipt Date: 20090726
  Transmission Date: 20110831
  Serious: Yes (Death, Hospitalization, Other)
  Sender: FDA-Public Use
  Company Number: US-BAYER-200927728NA

PATIENT
  Sex: Male
  Weight: 124.7 kg

DRUGS (18)
  1. VERSED [Concomitant]
     Dosage: DAILY DOSE 2 MG
     Route: 042
     Dates: start: 20060911
  2. VERSED [Concomitant]
     Dosage: DAILY DOSE 10 MG
     Route: 042
     Dates: start: 20060913
  3. NICARDIPINE HYDROCHLORIDE [Concomitant]
     Dosage: UNK
     Route: 042
     Dates: start: 20060913
  4. COZAAR [Concomitant]
     Dosage: LONG TERM MEDICATION
     Route: 048
  5. TRASYLOL [Suspect]
     Indication: CORONARY ARTERY BYPASS
  6. HUMALOG [Concomitant]
     Dosage: LONG TERM MEDICATION
     Route: 058
  7. TRASYLOL [Suspect]
     Indication: CARDIAC PACEMAKER INSERTION
  8. ASPIRIN [Concomitant]
     Dosage: UNK
     Route: 048
     Dates: start: 19990101
  9. TRASYLOL [Suspect]
     Indication: THORACIC OPERATION
     Route: 042
     Dates: start: 20060913
  10. LASIX [Concomitant]
     Dosage: DAILY DOSE 60 MG
     Route: 042
     Dates: start: 20060913
  11. METFORMIN [Concomitant]
     Dosage: LONG-TERM MEDICATION
     Route: 048
  12. HEPARIN [Concomitant]
     Dosage: UNK
     Route: 042
     Dates: start: 20060911
  13. INSULIN [Concomitant]
     Dosage: UNK
     Route: 042
     Dates: start: 20060913
  14. AMIODARONE HCL [Concomitant]
     Dosage: UNK
     Route: 041
     Dates: start: 20060913
  15. LANTUS [Concomitant]
     Dosage: LONG TERM MEDICATION
     Route: 058
  16. HEPARIN [Concomitant]
     Dosage: UNK
     Route: 042
     Dates: start: 20060913
  17. NITROGLYCERIN [Concomitant]
     Dosage: DAILY DOSE 6 ?G
     Route: 042
     Dates: start: 20060911
  18. EPINEPHRINE [Concomitant]
     Dosage: UNK
     Route: 042
     Dates: start: 20060913

REACTIONS (13)
  - FEAR [None]
  - EMOTIONAL DISTRESS [None]
  - MULTI-ORGAN FAILURE [None]
  - RENAL IMPAIRMENT [None]
  - UNEVALUABLE EVENT [None]
  - RENAL INJURY [None]
  - ANXIETY [None]
  - ANHEDONIA [None]
  - RENAL FAILURE [None]
  - INJURY [None]
  - DEATH [None]
  - STRESS [None]
  - PAIN [None]
